FAERS Safety Report 18326090 (Version 1)
Quarter: 2020Q3

REPORT INFORMATION
  Report Type: Spontaneous
  Country: NL (occurrence: NL)
  Receive Date: 20200929
  Receipt Date: 20200929
  Transmission Date: 20201103
  Serious: Yes (Other)
  Sender: FDA-Public Use
  Company Number: NL-PFIZER INC-2020368258

PATIENT
  Age: 62 Year
  Sex: Male
  Weight: 98 kg

DRUGS (19)
  1. SUFENTANIL [Concomitant]
     Active Substance: SUFENTANIL
     Dosage: 1 DF (VV, 50UG/ML)
  2. IPRATROPIUM [Concomitant]
     Active Substance: IPRATROPIUM
     Dosage: 20 UG, 4X/DAY (AEROSOL)
  3. VORICONAZOLE. [Suspect]
     Active Substance: VORICONAZOLE
     Indication: BRONCHOPULMONARY ASPERGILLOSIS
     Dosage: 320 MG, 2X/DAY
     Dates: start: 20200828
  4. NORADRENALINE (NORPINEPHRINE) [Concomitant]
     Active Substance: NOREPINEPHRINE
     Dosage: 1 DF (VV)
  5. PAROXETINE. [Concomitant]
     Active Substance: PAROXETINE
     Dosage: 30 MG, 1X/DAY (3 PIECES)
  6. EYEGEL [Concomitant]
     Dosage: 2 DROP, 4X/DAY
  7. ACETYLSALICYLZUUR [Concomitant]
     Active Substance: ASPIRIN
     Dosage: 80 MG, 1X/DAY
  8. NIFEDIPINE. [Concomitant]
     Active Substance: NIFEDIPINE
     Dosage: 10 MG, 1X/DAY
  9. ZOPICLON [Concomitant]
     Active Substance: ZOPICLONE
     Dosage: 7.5 MG, 1X/DAY (IF NECESSARY ONE EXTRA)
  10. OXAZEPAM. [Concomitant]
     Active Substance: OXAZEPAM
     Dosage: 5 MG, 3X/DAY
  11. NADROPARINE [Concomitant]
     Active Substance: NADROPARIN
     Dosage: 0.3 ML, 1X/DAY
  12. INSULINE ASPARTATE [Concomitant]
     Active Substance: INSULIN ASPART
     Dosage: 4 IU (VV: START PUMP ON SEH 4 UNITS)
  13. PANTOPRAZOL [PANTOPRAZOLE] [Concomitant]
     Active Substance: PANTOPRAZOLE
     Dosage: 40 MG, 1X/DAY
  14. METOCLOPRAMIDE. [Concomitant]
     Active Substance: METOCLOPRAMIDE
     Dosage: 5 MG, 3X/DAY
  15. SALBUTAMOL [Concomitant]
     Active Substance: ALBUTEROL
     Dosage: 100 MG, 4X/DAY
  16. ATENOLOL. [Concomitant]
     Active Substance: ATENOLOL
     Dosage: 50 MG, 1X/DAY
  17. TEMAZEPAM. [Concomitant]
     Active Substance: TEMAZEPAM
     Dosage: 20 MG, 1X/DAY
  18. MAGNESIUMHYDROXIDE [Concomitant]
     Dosage: 1448 MG, 3X/DAY (2 PIECES)
  19. SIMVASTATIN. [Interacting]
     Active Substance: SIMVASTATIN
     Indication: HYPERCHOLESTEROLAEMIA
     Dosage: 80 MG, 1X/DAY
     Dates: start: 2010, end: 20200831

REACTIONS (3)
  - Acute kidney injury [Recovering/Resolving]
  - Drug interaction [Unknown]
  - Rhabdomyolysis [Recovering/Resolving]

NARRATIVE: CASE EVENT DATE: 20200831
